FAERS Safety Report 18611909 (Version 1)
Quarter: 2020Q4

REPORT INFORMATION
  Report Type: Spontaneous
  Country: US (occurrence: US)
  Receive Date: 20201214
  Receipt Date: 20201214
  Transmission Date: 20210114
  Serious: No
  Sender: FDA-Public Use
  Company Number: None

PATIENT
  Age: 6 Year
  Sex: Female
  Weight: 16.2 kg

DRUGS (3)
  1. MULTIVITAMIN ADULT [Concomitant]
  2. MEKINIST [Suspect]
     Active Substance: TRAMETINIB DIMETHYL SULFOXIDE
     Indication: BRAIN NEOPLASM MALIGNANT
     Route: 048
     Dates: start: 20200616, end: 20201214
  3. BRAFTOVI [Suspect]
     Active Substance: ENCORAFENIB
     Indication: BRAIN NEOPLASM MALIGNANT
     Route: 048
     Dates: start: 20200616, end: 20201214

REACTIONS (1)
  - Disease progression [None]

NARRATIVE: CASE EVENT DATE: 20201214
